FAERS Safety Report 8963671 (Version 1)
Quarter: 2012Q4

REPORT INFORMATION
  Report Type: 
  Country: IL (occurrence: IL)
  Receive Date: 20121214
  Receipt Date: 20121214
  Transmission Date: 20130627
  Serious: Yes (Hospitalization)
  Sender: FDA-Public Use
  Company Number: US-009507513-1212ISR003133

PATIENT
  Age: 62 Year
  Sex: Male
  Weight: 95 kg

DRUGS (8)
  1. JANUVIA [Suspect]
     Indication: DIABETES MELLITUS
     Dosage: UNK
     Route: 048
     Dates: start: 20101207
  2. REPAGLINIDE [Suspect]
     Indication: DIABETES MELLITUS
     Dosage: UNK
     Route: 048
     Dates: start: 20110715
  3. INSULIN GLARGINE [Suspect]
     Indication: TYPE 2 DIABETES MELLITUS
     Dosage: UNK
     Route: 048
     Dates: start: 20110508
  4. SIMVASTATIN [Concomitant]
     Dosage: UNK
     Route: 048
     Dates: start: 20070102
  5. ASPIRIN [Concomitant]
     Dosage: UNK
     Route: 048
     Dates: start: 20051110
  6. FOSALAN [Concomitant]
     Indication: OSTEOPOROSIS
     Dosage: UNK
     Route: 048
     Dates: start: 20080228
  7. OMEPRAZOLE [Concomitant]
     Dosage: UNK
     Route: 048
     Dates: start: 20070205
  8. TRITACE [Concomitant]
     Dosage: UNK
     Route: 048
     Dates: start: 20110508

REACTIONS (3)
  - Urinary retention [Recovered/Resolved]
  - Hypoglycaemia [Recovered/Resolved]
  - Asthenia [Recovered/Resolved]
